FAERS Safety Report 8557948-6 (Version None)
Quarter: 2012Q3

REPORT INFORMATION
  Report Type: 
  Country: None (occurrence: None)
  Receive Date: 20120801
  Receipt Date: 20120727
  Transmission Date: 20120928
  Serious: Yes (Other)
  Sender: FDA-Public Use
  Company Number: US-JNJFOC-20120714293

PATIENT
  Sex: Male
  Weight: 102.06 kg

DRUGS (1)
  1. STELARA [Suspect]
     Indication: PSORIASIS
     Route: 058
     Dates: start: 20100401

REACTIONS (3)
  - GLUCOSE TOLERANCE IMPAIRED [None]
  - ERECTILE DYSFUNCTION [None]
  - WEIGHT DECREASED [None]
